FAERS Safety Report 11070962 (Version 3)
Quarter: 2015Q2

REPORT INFORMATION
  Report Type: Report from Study
  Country: US (occurrence: US)
  Receive Date: 20150428
  Receipt Date: 20150609
  Transmission Date: 20150821
  Serious: Yes (Death, Other)
  Sender: FDA-Public Use
  Company Number: US-ALEXION-A201404686

PATIENT

DRUGS (1)
  1. SOLIRIS [Suspect]
     Active Substance: ECULIZUMAB
     Indication: HAEMOLYTIC URAEMIC SYNDROME
     Dosage: UNK
     Route: 042

REACTIONS (5)
  - Vomiting [Unknown]
  - Pancreatic carcinoma [Unknown]
  - Fatigue [Unknown]
  - Death [Fatal]
  - Nausea [Unknown]

NARRATIVE: CASE EVENT DATE: 20150416
